FAERS Safety Report 15686217 (Version 1)
Quarter: 2018Q4

REPORT INFORMATION
  Report Type: Spontaneous
  Country: US (occurrence: US)
  Receive Date: 20181204
  Receipt Date: 20181204
  Transmission Date: 20190205
  Serious: Yes (Hospitalization, Other)
  Sender: FDA-Public Use
  Company Number: US-BAUSCH-BL-2018-033815

PATIENT
  Age: 39 Year
  Sex: Male

DRUGS (1)
  1. DILTIAZEM. [Suspect]
     Active Substance: DILTIAZEM
     Indication: ATRIAL FLUTTER
     Route: 065

REACTIONS (2)
  - Renal impairment [Unknown]
  - Acute generalised exanthematous pustulosis [Recovered/Resolved]
